FAERS Safety Report 22115504 (Version 1)
Quarter: 2023Q1

REPORT INFORMATION
  Report Type: Spontaneous
  Country: CA (occurrence: CA)
  Receive Date: 20230320
  Receipt Date: 20230320
  Transmission Date: 20230418
  Serious: Yes (Other)
  Sender: FDA-Public Use
  Company Number: CA-ELI_LILLY_AND_COMPANY-CA202303004896

PATIENT
  Sex: Female

DRUGS (6)
  1. ZYPREXA [Suspect]
     Active Substance: OLANZAPINE
     Indication: Product used for unknown indication
     Dosage: 2 DOSAGE FORM, DAILY
     Route: 065
  2. BENZTROPINE [Suspect]
     Active Substance: BENZTROPINE
     Indication: Tremor
     Dosage: 2 MG, UNKNOWN
     Route: 048
  3. ABILIFY [Concomitant]
     Active Substance: ARIPIPRAZOLE
     Indication: Nervousness
  4. ABILIFY [Concomitant]
     Active Substance: ARIPIPRAZOLE
     Indication: Akathisia
  5. ATIVAN [Concomitant]
     Active Substance: LORAZEPAM
     Indication: Nervousness
  6. ATIVAN [Concomitant]
     Active Substance: LORAZEPAM
     Indication: Akathisia

REACTIONS (6)
  - Derealisation [Unknown]
  - Psychotic disorder [Unknown]
  - Disorientation [Unknown]
  - Feeling abnormal [Unknown]
  - Irritability [Unknown]
  - Personality change [Unknown]
